FAERS Safety Report 12939709 (Version 1)
Quarter: 2016Q4

REPORT INFORMATION
  Report Type: Report from Study
  Country: None (occurrence: GR)
  Receive Date: 20161114
  Receipt Date: 20161114
  Transmission Date: 20170207
  Serious: Yes (Hospitalization, Other)
  Sender: FDA-Public Use
  Company Number: GR-ABBVIE-16P-066-1776121-00

PATIENT
  Age: 69 Year
  Sex: Female

DRUGS (8)
  1. CLONAZEPAM (CLONOTRIL) [Concomitant]
     Indication: ESSENTIAL TREMOR
     Route: 048
  2. AMANTADINE (SYMMETREL) [Concomitant]
     Indication: PARKINSON^S DISEASE
     Route: 048
  3. LIPITOR [Concomitant]
     Active Substance: ATORVASTATIN CALCIUM
     Indication: DYSLIPIDAEMIA
     Route: 048
  4. PRAMIPEXOLE (MEDOPEXOL) [Concomitant]
     Indication: PARKINSON^S DISEASE
     Route: 048
  5. CITALOPRAM (TALOSIN) [Concomitant]
     Indication: DEPRESSION
     Route: 048
  6. LANSOPRAZOLE (LAPRAZOL) [Concomitant]
     Indication: GASTRIC DISORDER
     Route: 048
  7. LANSOPRAZOLE (LAPRAZOL) [Concomitant]
     Indication: PROPHYLAXIS
  8. DUODOPA [Suspect]
     Active Substance: CARBIDOPA\LEVODOPA
     Indication: PARKINSON^S DISEASE
     Dosage: MORNING DOSE: 12.2 ML; CONTINUOUS RATE: 2.4 ML/H; EXTRA DOSE: 1.9 ML
     Route: 050
     Dates: start: 20160216

REACTIONS (4)
  - Joint dislocation [Recovered/Resolved]
  - Pain in extremity [Recovered/Resolved]
  - Fall [Recovered/Resolved]
  - Device material issue [Recovered/Resolved]

NARRATIVE: CASE EVENT DATE: 20161025
